FAERS Safety Report 4817927-9 (Version None)
Quarter: 2005Q3

REPORT INFORMATION
  Report Type: 
  Country: None (occurrence: None)
  Receive Date: 20050929
  Receipt Date: 20050825
  Transmission Date: 20060218
  Serious: No
  Sender: FDA-Public Use
  Company Number: 05P-163-0309272-00

PATIENT
  Sex: Female
  Weight: 72.5755 kg

DRUGS (9)
  1. HUMIRA [Suspect]
     Indication: RHEUMATOID ARTHRITIS
     Dosage: 40 MG, 1 IN 2 WK, SUBCUTANEOUS
     Route: 058
     Dates: start: 20040901
  2. CRESTOR [Concomitant]
  3. ESOMEPRAZOLE [Concomitant]
  4. KARVEA HCT [Concomitant]
  5. CLONIDINE [Concomitant]
  6. VERAPAMIL HYDROCHLORIDE [Concomitant]
  7. GEMFIBROZIL [Concomitant]
  8. GABAPENTIN [Concomitant]
  9. MAPROTILINE HYDROCHLORIDE [Concomitant]

REACTIONS (1)
  - KIDNEY INFECTION [None]
